FAERS Safety Report 4853076-1 (Version None)
Quarter: 2005Q4

REPORT INFORMATION
  Report Type: 
  Country: None (occurrence: None)
  Receive Date: 20051212
  Receipt Date: 20051118
  Transmission Date: 20060501
  Serious: Yes (Other)
  Sender: FDA-Public Use
  Company Number: US200512000055

PATIENT
  Age: 46 Year
  Sex: Male

DRUGS (4)
  1. HUMULIN R [Suspect]
     Indication: DIABETES MELLITUS INSULIN-DEPENDENT
     Dosage: 2/D, SUBCUTANEOUS
     Route: 058
  2. HUMULIN L [Suspect]
     Indication: DIABETES MELLITUS INSULIN-DEPENDENT
     Dosage: 2/D, SUBCUTANEOUS
     Route: 058
  3. INSULIN, ANIMAL B/PNPH(INSULIN, ANIMAL BEEF/PORK NPH) VIAL [Suspect]
     Indication: DIABETES MELLITUS INSULIN-DEPENDENT
  4. ILETIN [Suspect]
     Indication: DIABETES MELLITUS INSULIN-DEPENDENT

REACTIONS (7)
  - BLINDNESS [None]
  - BLOOD GLUCOSE INCREASED [None]
  - CEREBRAL ISCHAEMIA [None]
  - CEREBROVASCULAR ACCIDENT [None]
  - DRUG INEFFECTIVE [None]
  - DRUG TOLERANCE [None]
  - POOR QUALITY DRUG ADMINISTERED [None]
